FAERS Safety Report 24226319 (Version 1)
Quarter: 2024Q3

REPORT INFORMATION
  Report Type: Report from Study
  Country: TW (occurrence: None)
  Receive Date: 20240820
  Receipt Date: 20240820
  Transmission Date: 20241016
  Serious: Yes (Hospitalization)
  Sender: ASTRAZENECA
  Company Number: 2023A094333

PATIENT
  Age: 73 Year
  Sex: Male

DRUGS (2)
  1. IMFINZI [Suspect]
     Active Substance: DURVALUMAB
     Dosage: 1480.0MG UNKNOWN
     Route: 042
     Dates: start: 20221014
  2. IMFINZI [Suspect]
     Active Substance: DURVALUMAB
     Dosage: 1440.0MG UNKNOWN
     Route: 042
     Dates: start: 20220920

REACTIONS (1)
  - Condition aggravated [Unknown]
